FAERS Safety Report 17405594 (Version 2)
Quarter: 2020Q1

REPORT INFORMATION
  Report Type: Spontaneous
  Country: DE (occurrence: DE)
  Receive Date: 20200212
  Receipt Date: 20200224
  Transmission Date: 20200409
  Serious: Yes (Hospitalization, Other)
  Sender: FDA-Public Use
  Company Number: DE-TEVA-2020-DE-1165850

PATIENT
  Age: 30 Year
  Sex: Female

DRUGS (5)
  1. MYLEPSINUM 250 MG TABLETTEN [Suspect]
     Active Substance: PRIMIDONE
     Indication: EPILEPSY
     Dosage: 125 MILLIGRAM DAILY;
     Route: 048
     Dates: start: 19940113, end: 20191129
  2. LAFAMNE 2/2 MG [Concomitant]
     Dosage: 2 MILLIGRAM DAILY;
     Dates: start: 20040108
  3. LOPERAMID [Concomitant]
     Active Substance: LOPERAMIDE
  4. VITAMIN B12 [Concomitant]
     Active Substance: CYANOCOBALAMIN
  5. PARACETAMOL [Concomitant]
     Active Substance: ACETAMINOPHEN

REACTIONS (46)
  - Metabolic disorder [Recovering/Resolving]
  - Tremor [Recovering/Resolving]
  - Impaired work ability [Recovering/Resolving]
  - Photosensitivity reaction [Recovered/Resolved]
  - Toxicity to various agents [Unknown]
  - Dizziness [Recovered/Resolved]
  - Tension headache [Recovered/Resolved]
  - Sudden hearing loss [Unknown]
  - Visual impairment [Recovered/Resolved]
  - Neuralgia [Unknown]
  - Mental status changes [Recovering/Resolving]
  - Musculoskeletal pain [Recovered/Resolved]
  - Increased appetite [Recovering/Resolving]
  - Neurodermatitis [Recovering/Resolving]
  - Drug withdrawal syndrome [Recovering/Resolving]
  - Renal function test abnormal [Recovering/Resolving]
  - Anaemia [Recovered/Resolved]
  - Suicidal ideation [Recovered/Resolved]
  - Spondylolisthesis [Unknown]
  - Vitamin B12 deficiency [Unknown]
  - Suicide attempt [Unknown]
  - Asthma [Unknown]
  - Nausea [Unknown]
  - Pain [Unknown]
  - Pruritus [Recovering/Resolving]
  - Liver function test abnormal [Recovering/Resolving]
  - Staring [Recovered/Resolved]
  - Aggression [Recovering/Resolving]
  - Blood test abnormal [Recovering/Resolving]
  - Early retirement [Unknown]
  - Coagulopathy [Recovered/Resolved]
  - Vitamin D deficiency [Unknown]
  - Coordination abnormal [Unknown]
  - Diarrhoea [Recovering/Resolving]
  - Polydipsia [Recovering/Resolving]
  - Pain of skin [Recovering/Resolving]
  - Feeling hot [Recovering/Resolving]
  - Impaired quality of life [Recovering/Resolving]
  - Bone disorder [Unknown]
  - Circulatory collapse [Recovered/Resolved]
  - Psoriasis [Unknown]
  - Language disorder [Recovering/Resolving]
  - Back pain [Recovering/Resolving]
  - Retirement [Unknown]
  - Drug hypersensitivity [Recovered/Resolved]
  - Syncope [Unknown]

NARRATIVE: CASE EVENT DATE: 19940117
